FAERS Safety Report 5671030-7 (Version None)
Quarter: 2008Q1

REPORT INFORMATION
  Report Type: 
  Country: None (occurrence: None)
  Receive Date: 20080318
  Receipt Date: 20080111
  Transmission Date: 20080703
  Serious: Yes (Other)
  Sender: FDA-Public Use
  Company Number: US-BAYER-200811248GPV

PATIENT
  Age: 60 Year
  Sex: Female

DRUGS (1)
  1. GADOLINIUM [Suspect]
     Indication: ANGIOGRAM
     Route: 042

REACTIONS (3)
  - ENCEPHALOPATHY [None]
  - HYPERTENSION [None]
  - NUCLEAR MAGNETIC RESONANCE IMAGING [None]
